FAERS Safety Report 5367068-X (Version None)
Quarter: 2007Q2

REPORT INFORMATION
  Report Type: 
  Country: None (occurrence: None)
  Receive Date: 20070622
  Receipt Date: 20070612
  Transmission Date: 20071010
  Serious: Yes (Hospitalization)
  Sender: FDA-Public Use
  Company Number: B0475555A

PATIENT
  Age: 87 Year
  Sex: Female
  Weight: 70 kg

DRUGS (3)
  1. DEROXAT [Suspect]
     Dosage: 5MG PER DAY
     Route: 048
     Dates: start: 20070417, end: 20070426
  2. ATHYMIL [Concomitant]
     Route: 048
     Dates: end: 20070417
  3. PROZAC [Concomitant]
     Route: 048

REACTIONS (2)
  - SLEEP DISORDER [None]
  - TREMOR [None]
